FAERS Safety Report 5733726-8 (Version None)
Quarter: 2008Q2

REPORT INFORMATION
  Report Type: 
  Country: None (occurrence: None)
  Receive Date: 20080509
  Receipt Date: 20080429
  Transmission Date: 20081010
  Serious: Yes (Other)
  Sender: FDA-Public Use
  Company Number: AT-ABBOTT-08P-009-0449472-00

PATIENT
  Age: 67 Year
  Sex: Male

DRUGS (1)
  1. DEPAKENE [Suspect]
     Indication: INTENTIONAL OVERDOSE
     Dosage: 29 TABLETS ONCE
     Route: 048
     Dates: start: 20080207, end: 20080207

REACTIONS (4)
  - ATAXIA [None]
  - DYSARTHRIA [None]
  - INTENTIONAL OVERDOSE [None]
  - SOMNOLENCE [None]
